FAERS Safety Report 5738622-8 (Version None)
Quarter: 2008Q2

REPORT INFORMATION
  Report Type: 
  Country: None (occurrence: None)
  Receive Date: 20080515
  Receipt Date: 20080507
  Transmission Date: 20081010
  Serious: Yes (Other)
  Sender: FDA-Public Use
  Company Number: PHBS1998AU31435

PATIENT
  Age: 40 Year
  Sex: Female
  Weight: 72 kg

DRUGS (11)
  1. FAMVIR [Suspect]
     Dosage: 750 MG/DAY
     Route: 048
     Dates: start: 19980311
  2. DAONIL [Concomitant]
     Dosage: UNK, UNK
     Route: 048
     Dates: start: 19971209
  3. DIABEX [Concomitant]
     Dosage: 2 DOSE/DAY
     Route: 048
     Dates: start: 19971110
  4. PROPULSID [Concomitant]
     Dosage: 40 MG, PRN
     Route: 048
     Dates: start: 19980313, end: 19980313
  5. TETREX [Concomitant]
     Dosage: 1 GRAM DAILY
     Route: 048
     Dates: start: 19980301
  6. THEO-DUR [Concomitant]
     Dosage: UNK, UNK
     Route: 048
     Dates: start: 19971212
  7. VENTOLIN [Concomitant]
     Dosage: UNK, UNK
     Dates: start: 19960520
  8. VENTOLIN [Concomitant]
     Dosage: UNK, UNK
  9. ZANTAC [Concomitant]
     Dosage: UNK, UNK
     Route: 048
  10. ZOVIRAX [Concomitant]
     Dosage: 5 DF/DAY
     Route: 061
     Dates: start: 19980311
  11. VENTOLIN [Concomitant]
     Dosage: 12 DF/DAY

REACTIONS (2)
  - CHEST PAIN [None]
  - PALPITATIONS [None]
